FAERS Safety Report 6222616-2 (Version None)
Quarter: 2009Q2

REPORT INFORMATION
  Report Type: 
  Country: None (occurrence: None)
  Receive Date: 20090609
  Receipt Date: 20090609
  Transmission Date: 20091009
  Serious: Yes (Life-Threatening)
  Sender: FDA-Public Use
  Company Number: None

PATIENT
  Age: 64 Year
  Sex: Male
  Weight: 62 kg

DRUGS (1)
  1. CORDARONE [Suspect]
     Dosage: 200 MG QD PO
     Route: 048

REACTIONS (7)
  - ASTHENIA [None]
  - ENURESIS [None]
  - LIVER DISORDER [None]
  - MEMORY IMPAIRMENT [None]
  - SOMNOLENCE [None]
  - SPEECH DISORDER [None]
  - TREMOR [None]
